FAERS Safety Report 10038743 (Version 2)
Quarter: 2014Q2

REPORT INFORMATION
  Report Type: Spontaneous
  Country: JP (occurrence: JP)
  Receive Date: 20140326
  Receipt Date: 20140605
  Transmission Date: 20141212
  Serious: Yes (Hospitalization)
  Sender: FDA-Public Use
  Company Number: JP-SA-2014SA034849

PATIENT
  Age: 70 Year
  Sex: Male
  Weight: 76.3 kg

DRUGS (11)
  1. AVAPRO [Suspect]
     Indication: HYPERTENSION
     Route: 048
     Dates: start: 20131122, end: 20140108
  2. TAKEPRON [Suspect]
     Indication: PROPHYLAXIS
     Route: 048
     Dates: start: 20131121, end: 20140108
  3. FEBURIC [Suspect]
     Indication: HYPERURICAEMIA
     Route: 048
     Dates: start: 20131119, end: 20140108
  4. ALDACTONE-A [Suspect]
     Indication: POLYURIA
     Route: 048
     Dates: start: 20131122, end: 20140108
  5. LUPRAC [Suspect]
     Indication: DIURETIC THERAPY
     Route: 048
     Dates: start: 20131120, end: 20140108
  6. CONIEL [Suspect]
     Indication: HYPERTENSION
     Route: 048
     Dates: start: 20131120, end: 20140108
  7. ARTIST [Suspect]
     Indication: CARDIAC FAILURE
     Route: 048
     Dates: start: 20131122, end: 20140108
  8. ARTIST [Suspect]
     Indication: CARDIAC FAILURE
     Route: 048
     Dates: start: 20140125
  9. WARFARIN [Suspect]
     Indication: ANTICOAGULANT THERAPY
     Route: 048
     Dates: start: 20131120, end: 20140108
  10. WARFARIN [Suspect]
     Indication: ANTICOAGULANT THERAPY
     Route: 048
     Dates: start: 20140120
  11. TRAZENTA [Suspect]
     Indication: DIABETES MELLITUS
     Route: 048
     Dates: start: 20131122, end: 20140108

REACTIONS (1)
  - Agranulocytosis [Recovered/Resolved]
